FAERS Safety Report 8934861 (Version 8)
Quarter: 2015Q2

REPORT INFORMATION
  Report Type: Spontaneous
  Country: US (occurrence: US)
  Receive Date: 20121129
  Receipt Date: 20150616
  Transmission Date: 20150821
  Serious: No
  Sender: FDA-Public Use
  Company Number: US-009507513-1211USA012126

PATIENT
  Sex: Male
  Weight: 73.92 kg

DRUGS (2)
  1. PROPECIA [Suspect]
     Active Substance: FINASTERIDE
     Indication: ALOPECIA
     Dosage: 1 MG, QD
     Route: 048
     Dates: start: 20080609, end: 20081125
  2. FINASTERIDE. [Suspect]
     Active Substance: FINASTERIDE
     Indication: ALOPECIA
     Dosage: 5 MG, QD
     Route: 048
     Dates: start: 20080619, end: 20081105

REACTIONS (49)
  - Dizziness [Unknown]
  - Metal poisoning [Unknown]
  - Nasal congestion [Unknown]
  - Blood glucose decreased [Unknown]
  - Mood swings [Unknown]
  - Weight decreased [Unknown]
  - Vitamin B6 increased [Unknown]
  - Fatigue [Unknown]
  - Hyperhidrosis [Unknown]
  - Myalgia [Unknown]
  - Arthralgia [Unknown]
  - Male orgasmic disorder [Unknown]
  - Agoraphobia [Unknown]
  - Dyspnoea [Unknown]
  - Fatigue [Unknown]
  - Ejaculation delayed [Unknown]
  - Loss of libido [Unknown]
  - Cognitive disorder [Not Recovered/Not Resolved]
  - Anxiety [Unknown]
  - Blood iron decreased [Unknown]
  - Neuropathy peripheral [Unknown]
  - Constipation [Unknown]
  - Panic attack [Unknown]
  - Craniocerebral injury [Unknown]
  - Psychiatric symptom [Unknown]
  - Drug administration error [Unknown]
  - Muscle spasms [Unknown]
  - Weight fluctuation [Unknown]
  - Varicocele [Unknown]
  - Erectile dysfunction [Not Recovered/Not Resolved]
  - Hypogonadism [Recovered/Resolved]
  - Muscle spasms [Unknown]
  - Aggression [Unknown]
  - Chills [Unknown]
  - Diarrhoea [Unknown]
  - Nausea [Unknown]
  - Restless legs syndrome [Unknown]
  - Paraesthesia [Unknown]
  - Abdominal distension [Unknown]
  - Tourette^s disorder [Unknown]
  - Depression [Unknown]
  - Asthenia [Unknown]
  - Dyspnoea [Unknown]
  - Pain in extremity [Unknown]
  - Feeling of body temperature change [Unknown]
  - Headache [Unknown]
  - Sleep disorder [Unknown]
  - Vision blurred [Unknown]
  - Sexual dysfunction [Not Recovered/Not Resolved]

NARRATIVE: CASE EVENT DATE: 2008
